FAERS Safety Report 16128175 (Version 2)
Quarter: 2019Q3

REPORT INFORMATION
  Report Type: Spontaneous
  Country: US (occurrence: US)
  Receive Date: 20190328
  Receipt Date: 20190927
  Transmission Date: 20191004
  Serious: Yes (Other)
  Sender: FDA-Public Use
  Company Number: US-SA-2019SA082322

PATIENT
  Sex: Female
  Weight: 74.83 kg

DRUGS (5)
  1. B COMPLEX [VITAMIN B COMPLEX] [Concomitant]
  2. VITAMIN C [Concomitant]
     Active Substance: ASCORBIC ACID
  3. MULTIVITAMINS [VITAMINS NOS] [Concomitant]
     Active Substance: VITAMINS
  4. VITAMIN D3 [Concomitant]
     Active Substance: CHOLECALCIFEROL
  5. AUBAGIO [Suspect]
     Active Substance: TERIFLUNOMIDE
     Indication: MULTIPLE SCLEROSIS
     Dosage: 14 MG, QD
     Route: 048
     Dates: start: 20181001

REACTIONS (5)
  - Balance disorder [Unknown]
  - Dizziness [Unknown]
  - Visual impairment [Unknown]
  - Depression [Unknown]
  - Multiple sclerosis relapse [Unknown]
